FAERS Safety Report 9570423 (Version 2)
Quarter: 2013Q3

REPORT INFORMATION
  Report Type: Spontaneous
  Country: US (occurrence: US)
  Receive Date: 20130930
  Receipt Date: 20130930
  Transmission Date: 20140515
  Serious: No
  Sender: FDA-Public Use
  Company Number: US-AMGEN-USASP2012081794

PATIENT
  Age: 47 Year
  Sex: Female

DRUGS (5)
  1. ENBREL [Suspect]
     Indication: RHEUMATOID ARTHRITIS
     Dosage: 50 MG, QWK
     Route: 065
     Dates: start: 20121212, end: 201307
  2. ENBREL [Suspect]
     Indication: PSORIASIS
  3. ENBREL [Suspect]
     Indication: PSORIATIC ARTHROPATHY
  4. METHOTREXATE [Concomitant]
     Dosage: 2.5 MG FOR 7 WEEKS
  5. HUMIRA [Concomitant]
     Dosage: UNK

REACTIONS (4)
  - Swelling [Not Recovered/Not Resolved]
  - Therapeutic response decreased [Unknown]
  - Psoriasis [Not Recovered/Not Resolved]
  - Influenza [Recovered/Resolved]
